FAERS Safety Report 8257469-4 (Version None)
Quarter: 2012Q2

REPORT INFORMATION
  Report Type: 
  Country: None (occurrence: None)
  Receive Date: 20120403
  Receipt Date: 20090928
  Transmission Date: 20120825
  Serious: Yes (Other)
  Sender: FDA-Public Use
  Company Number: PHHY2009TH070442

PATIENT
  Sex: Female

DRUGS (1)
  1. GLEEVEC [Suspect]
     Indication: CHRONIC MYELOID LEUKAEMIA
     Dosage: 100 MG, 4 TABLETS IN MORNING
     Route: 048

REACTIONS (4)
  - PALLOR [None]
  - NAIL DISCOLOURATION [None]
  - HAEMATOCRIT DECREASED [None]
  - CHIKUNGUNYA VIRUS INFECTION [None]
